FAERS Safety Report 9516423 (Version 1)
Quarter: 2013Q3

REPORT INFORMATION
  Report Type: Spontaneous
  Country: US (occurrence: US)
  Receive Date: 20130911
  Receipt Date: 20130911
  Transmission Date: 20140515
  Serious: Yes (Other)
  Sender: FDA-Public Use
  Company Number: US-BANPHARM-20131652

PATIENT
  Age: 72 Year
  Sex: Female
  Weight: 72.57 kg

DRUGS (1)
  1. LOPERAMIDE HCL [Suspect]
     Indication: DIARRHOEA
     Dosage: 10 DF IN 3 DAYS,
     Dates: start: 20130826, end: 20130828

REACTIONS (5)
  - Burn oesophageal [Recovered/Resolved]
  - Thermal burn [Recovered/Resolved]
  - Tongue injury [Recovered/Resolved]
  - Perianal erythema [Recovered/Resolved]
  - Anorectal discomfort [Recovered/Resolved]
